FAERS Safety Report 9945464 (Version 1)
Quarter: 2014Q1

REPORT INFORMATION
  Report Type: Report from Study
  Country: US (occurrence: US)
  Receive Date: 20140303
  Receipt Date: 20140303
  Transmission Date: 20141002
  Serious: No
  Sender: FDA-Public Use
  Company Number: US-ABBVIE-13P-163-1049072-00

PATIENT
  Sex: Female
  Weight: 108.96 kg

DRUGS (6)
  1. HUMIRA [Suspect]
     Indication: PSORIATIC ARTHROPATHY
     Route: 058
     Dates: start: 201204, end: 201210
  2. HUMIRA [Suspect]
     Route: 058
     Dates: start: 201210
  3. METHOTREXATE [Concomitant]
     Indication: PSORIATIC ARTHROPATHY
  4. PROZAC [Concomitant]
     Indication: ANXIETY
  5. WELLBUTRIN [Concomitant]
     Indication: ANXIETY
  6. FOLIC ACID [Concomitant]
     Indication: POLYMEDICATION

REACTIONS (4)
  - Toothache [Recovered/Resolved]
  - Tooth loss [Not Recovered/Not Resolved]
  - Device failure [Not Recovered/Not Resolved]
  - Tooth extraction [Unknown]
